FAERS Safety Report 25547155 (Version 1)
Quarter: 2025Q3

REPORT INFORMATION
  Report Type: Spontaneous
  Country: US (occurrence: US)
  Receive Date: 20250714
  Receipt Date: 20250714
  Transmission Date: 20251021
  Serious: Yes (Death, Other)
  Sender: HIKMA
  Company Number: US-HIKMA PHARMACEUTICALS USA INC.-US-H14001-25-08270

PATIENT
  Sex: Male

DRUGS (2)
  1. INFUMORPH [Suspect]
     Active Substance: MORPHINE SULFATE
     Indication: Neoplasm malignant
     Dosage: 5.005 MILLIGRAM, QD
     Route: 037
  2. FENTANYL [Concomitant]
     Active Substance: FENTANYL
     Indication: Product used for unknown indication
     Dosage: 350.3 MICROGRAM, QD
     Route: 065

REACTIONS (1)
  - Death [Fatal]
